FAERS Safety Report 21900869 (Version 1)
Quarter: 2023Q1

REPORT INFORMATION
  Report Type: Spontaneous
  Country: RU (occurrence: RU)
  Receive Date: 20230123
  Receipt Date: 20230123
  Transmission Date: 20230417
  Serious: Yes (Other)
  Sender: FDA-Public Use
  Company Number: RU-ALLERGAN-2301793US

PATIENT
  Sex: Female
  Weight: 75 kg

DRUGS (3)
  1. MILNACIPRAN [Suspect]
     Active Substance: MILNACIPRAN
     Indication: Depression
     Dosage: 100 MG, QD
     Route: 048
     Dates: start: 20201204, end: 2021
  2. QUETIAPINE [Concomitant]
     Active Substance: QUETIAPINE
     Indication: Anxiety
     Dosage: UNK
     Dates: start: 20200616
  3. LITHIUM CARBONATE [Concomitant]
     Active Substance: LITHIUM CARBONATE
     Indication: Affect lability
     Dosage: UNK
     Dates: start: 20200616

REACTIONS (1)
  - Hepatitis toxic [Recovered/Resolved]

NARRATIVE: CASE EVENT DATE: 20210203
